FAERS Safety Report 25277982 (Version 2)
Quarter: 2025Q2

REPORT INFORMATION
  Report Type: Spontaneous
  Country: US (occurrence: US)
  Receive Date: 20250507
  Receipt Date: 20250515
  Transmission Date: 20250716
  Serious: Yes (Life-Threatening, Hospitalization, Other)
  Sender: AUROBINDO
  Company Number: US-MLMSERVICE-20250416-PI478825-00271-1

PATIENT
  Age: 39 Year
  Sex: Female

DRUGS (3)
  1. PREDNISONE [Suspect]
     Active Substance: PREDNISONE
     Indication: Vogt-Koyanagi-Harada disease
     Dosage: 60 MILLIGRAM, ONCE A DAY (WITH A WEEKLY TAPER OF 10 MG)
     Route: 048
  2. PREDNISONE [Suspect]
     Active Substance: PREDNISONE
     Indication: Uveitis
  3. METFORMIN [Concomitant]
     Active Substance: METFORMIN HYDROCHLORIDE
     Indication: Type 2 diabetes mellitus
     Route: 065

REACTIONS (3)
  - Hyperglycaemic hyperosmolar nonketotic syndrome [Unknown]
  - Rhinocerebral mucormycosis [Recovered/Resolved]
  - Optic neuropathy [Recovered/Resolved]
